FAERS Safety Report 4982501-0 (Version None)
Quarter: 2006Q2

REPORT INFORMATION
  Report Type: 
  Country: None (occurrence: None)
  Receive Date: 20060421
  Receipt Date: 20060412
  Transmission Date: 20061013
  Serious: Yes (Disabling, Other)
  Sender: FDA-Public Use
  Company Number: 2006050419

PATIENT
  Age: 51 Year
  Sex: Male

DRUGS (10)
  1. NORVASC [Suspect]
     Indication: HYPERTENSION
     Dosage: 5 MG (5 MG, DAILY INTERVAL: EVERY DAY), ORAL
     Route: 048
     Dates: end: 20051201
  2. GLUCOPHAGE [Suspect]
     Indication: DIABETES MELLITUS
     Dates: end: 20060101
  3. XANAX [Concomitant]
  4. TRICOR [Concomitant]
  5. AVANDIA [Concomitant]
  6. NEXIUM [Concomitant]
  7. GLYBURIDE [Concomitant]
  8. LANTUS [Concomitant]
  9. CHLORAZEPAM (CLORAZEPATE DIPOTASSIUM) [Concomitant]
  10. ZOLOFT [Concomitant]

REACTIONS (30)
  - ACCIDENT AT WORK [None]
  - ANOREXIA [None]
  - ANXIETY [None]
  - ASTHENIA [None]
  - BLOOD PRESSURE FLUCTUATION [None]
  - DEPRESSION [None]
  - DRUG INEFFECTIVE [None]
  - DYSPEPSIA [None]
  - ECONOMIC PROBLEM [None]
  - FEELING ABNORMAL [None]
  - GASTRIC ULCER [None]
  - GASTRITIS [None]
  - GASTROOESOPHAGEAL REFLUX DISEASE [None]
  - HERNIA [None]
  - IMPAIRED WORK ABILITY [None]
  - INTERVERTEBRAL DISC PROTRUSION [None]
  - JOINT INJURY [None]
  - MOVEMENT DISORDER [None]
  - MUSCLE SPASMS [None]
  - NECK INJURY [None]
  - PAIN [None]
  - RENAL PAIN [None]
  - SKELETAL INJURY [None]
  - STOMACH DISCOMFORT [None]
  - STRESS [None]
  - SUICIDAL IDEATION [None]
  - TREATMENT NONCOMPLIANCE [None]
  - TREMOR [None]
  - VERTEBRAL INJURY [None]
  - WEIGHT DECREASED [None]
